FAERS Safety Report 16137692 (Version 2)
Quarter: 2019Q2

REPORT INFORMATION
  Report Type: Spontaneous
  Country: US (occurrence: US)
  Receive Date: 20190401
  Receipt Date: 20190514
  Transmission Date: 20190711
  Serious: Yes (Death, Other)
  Sender: FDA-Public Use
  Company Number: US-GLAXOSMITHKLINE-US2019GSK056653

PATIENT
  Sex: Male
  Weight: 66 kg

DRUGS (4)
  1. PREVACID [Suspect]
     Active Substance: LANSOPRAZOLE
     Indication: GASTROOESOPHAGEAL REFLUX DISEASE
     Dosage: 15 MG, QD
     Route: 065
  2. OMEPRAZOLE. [Suspect]
     Active Substance: OMEPRAZOLE
     Indication: GASTROOESOPHAGEAL REFLUX DISEASE
     Dosage: 40 MG, QD
     Route: 048
  3. OMEPRAZOLE. [Suspect]
     Active Substance: OMEPRAZOLE
     Indication: GASTROOESOPHAGEAL REFLUX DISEASE
     Dosage: 20 MG, QD
     Route: 048
  4. OMEPRAZOLE. [Suspect]
     Active Substance: OMEPRAZOLE
     Dosage: 20 MG, UNK
     Route: 065

REACTIONS (23)
  - Diabetic nephropathy [Unknown]
  - Cardiac arrest [Fatal]
  - Pneumonia [Fatal]
  - Renal failure [Unknown]
  - Pyuria [Unknown]
  - Renal tubular acidosis [Unknown]
  - End stage renal disease [Unknown]
  - Nephrogenic anaemia [Unknown]
  - Urinary incontinence [Unknown]
  - Nephropathy [Unknown]
  - Respiratory failure [Fatal]
  - Chronic kidney disease [Unknown]
  - Dialysis [Unknown]
  - Nephrolithiasis [Unknown]
  - Acute kidney injury [Unknown]
  - Renal impairment [Unknown]
  - Hypertensive nephropathy [Unknown]
  - Cardiac failure congestive [Fatal]
  - Renal cyst [Unknown]
  - Kidney infection [Unknown]
  - Nocturia [Unknown]
  - Blood creatinine increased [Unknown]
  - Proteinuria [Unknown]
